FAERS Safety Report 8033118-5 (Version None)
Quarter: 2012Q1

REPORT INFORMATION
  Report Type: 
  Country: None (occurrence: None)
  Receive Date: 20120110
  Receipt Date: 20120110
  Transmission Date: 20120608
  Serious: Yes (Life-Threatening, Hospitalization)
  Sender: FDA-Public Use
  Company Number: None

PATIENT
  Age: 53 Year
  Sex: Female
  Weight: 77.11 kg

DRUGS (1)
  1. VICTOZA [Suspect]
     Indication: OBESITY
     Dosage: .6 MG
     Route: 058
     Dates: start: 20110907, end: 20111008

REACTIONS (6)
  - ABDOMINAL PAIN UPPER [None]
  - PRURITUS [None]
  - PANCREATITIS [None]
  - VOMITING [None]
  - LIVER FUNCTION TEST ABNORMAL [None]
  - CHOLESTASIS [None]
